FAERS Safety Report 21383168 (Version 1)
Quarter: 2022Q3

REPORT INFORMATION
  Report Type: Spontaneous
  Country: US (occurrence: US)
  Receive Date: 20220927
  Receipt Date: 20220927
  Transmission Date: 20221027
  Serious: No
  Sender: FDA-Public Use
  Company Number: US-SA-SAC20220926000839

PATIENT
  Sex: Male

DRUGS (2)
  1. DUPIXENT [Suspect]
     Active Substance: DUPILUMAB
     Indication: Chronic obstructive pulmonary disease
     Dosage: RECEIVED THE 2 INJECTIONS TOGETHER FOR HIS DAY 1 DOSE
     Dates: start: 2022
  2. DUPIXENT [Suspect]
     Active Substance: DUPILUMAB
     Dosage: 300 MG QOW
     Route: 058
     Dates: start: 20220915

REACTIONS (4)
  - Fatigue [Unknown]
  - Toothache [Unknown]
  - Sleep deficit [Unknown]
  - Product use in unapproved indication [Unknown]
